FAERS Safety Report 8355273-X (Version None)
Quarter: 2012Q2

REPORT INFORMATION
  Report Type: 
  Country: None (occurrence: None)
  Receive Date: 20120511
  Receipt Date: 20120427
  Transmission Date: 20120825
  Serious: Yes (Hospitalization)
  Sender: FDA-Public Use
  Company Number: US-ACTELION-A-NJ2012-63216

PATIENT

DRUGS (20)
  1. AMLODIPINE BESYLATE [Concomitant]
  2. POTASSIUM CHLORIDE [Concomitant]
  3. SILDENAFIL [Concomitant]
  4. MONTELUKAST [Concomitant]
  5. LORAZEPAM [Concomitant]
  6. LASIX [Concomitant]
  7. REGLAN [Concomitant]
  8. EPOPROSTENOL SODIUM [Suspect]
     Indication: PULMONARY ARTERIAL HYPERTENSION
     Dosage: 75.5 NG/KG, PER MIN
     Route: 041
     Dates: start: 20101005
  9. LEVOTHYROXINE SODIUM [Concomitant]
  10. LEVSIN SL [Concomitant]
  11. AMBIEN [Concomitant]
  12. TRACLEER [Suspect]
     Indication: PULMONARY ARTERIAL HYPERTENSION
     Dosage: 125 MG, BID
     Route: 048
  13. LYRICA [Concomitant]
  14. METOCLOPRAMIDE [Concomitant]
  15. XIFAXAN [Concomitant]
  16. MIRAPEX [Concomitant]
  17. TRACLEER [Suspect]
     Dosage: UNK
     Route: 048
     Dates: start: 20030519
  18. CARDIAZEM [Concomitant]
  19. SPIRONOLACTONE [Concomitant]
  20. PANTOPRAZOLE [Concomitant]

REACTIONS (19)
  - GASTRIC POLYPS [None]
  - HYPERVOLAEMIA [None]
  - WEIGHT INCREASED [None]
  - DIZZINESS [None]
  - SYNCOPE [None]
  - ANAEMIA [None]
  - PALPITATIONS [None]
  - RIGHT VENTRICULAR FAILURE [None]
  - PERICARDIAL EFFUSION [None]
  - GASTROINTESTINAL ARTERIOVENOUS MALFORMATION [None]
  - GASTROINTESTINAL HAEMORRHAGE [None]
  - VOMITING [None]
  - OEDEMA [None]
  - FLUID OVERLOAD [None]
  - TRANSFUSION [None]
  - DYSPNOEA [None]
  - THROMBOPHLEBITIS SUPERFICIAL [None]
  - CONCOMITANT DISEASE AGGRAVATED [None]
  - ESCHERICHIA INFECTION [None]
